FAERS Safety Report 5036604-5 (Version None)
Quarter: 2006Q2

REPORT INFORMATION
  Report Type: 
  Country: None (occurrence: None)
  Receive Date: 20060531
  Receipt Date: 20060404
  Transmission Date: 20061013
  Serious: No
  Sender: FDA-Public Use
  Company Number: PHEH2006US04410

PATIENT
  Age: 48 Year
  Sex: Male

DRUGS (1)
  1. EXJADE [Suspect]
     Indication: BLOOD IRON INCREASED
     Dosage: 2000 MG, QD
     Dates: start: 20060208

REACTIONS (1)
  - THERAPEUTIC RESPONSE UNEXPECTED [None]
